FAERS Safety Report 10816008 (Version 1)
Quarter: 2015Q1

REPORT INFORMATION
  Report Type: Report from Study
  Country: US (occurrence: US)
  Receive Date: 20150218
  Receipt Date: 20150218
  Transmission Date: 20150721
  Serious: No
  Sender: FDA-Public Use
  Company Number: US-ABBVIE-14K-163-1282055-00

PATIENT
  Age: 65 Year
  Sex: Female

DRUGS (8)
  1. HUMIRA [Suspect]
     Active Substance: ADALIMUMAB
     Indication: RHEUMATOID ARTHRITIS
     Route: 065
     Dates: start: 20140803
  2. WELLBUTRIN [Suspect]
     Active Substance: BUPROPION HYDROCHLORIDE
     Indication: DEPRESSION
     Route: 065
     Dates: start: 201407
  3. PROZAC [Concomitant]
     Active Substance: FLUOXETINE HYDROCHLORIDE
     Indication: DEPRESSION
     Dates: start: 2014
  4. FIORICET [Concomitant]
     Active Substance: ACETAMINOPHEN\BUTALBITAL\CAFFEINE
     Indication: MIGRAINE
  5. METHOTREXATE [Concomitant]
     Active Substance: METHOTREXATE
     Indication: PRODUCT USED FOR UNKNOWN INDICATION
  6. HUMIRA [Suspect]
     Active Substance: ADALIMUMAB
     Route: 065
     Dates: start: 20141116
  7. WELLBUTRIN [Suspect]
     Active Substance: BUPROPION HYDROCHLORIDE
     Dosage: TAPERING
     Route: 065
     Dates: start: 2014, end: 2014
  8. CYMBALTA [Concomitant]
     Active Substance: DULOXETINE HYDROCHLORIDE
     Indication: ANXIETY
     Dates: start: 2014, end: 2014

REACTIONS (17)
  - Anxiety [Not Recovered/Not Resolved]
  - Headache [Not Recovered/Not Resolved]
  - Hepatic enzyme increased [Not Recovered/Not Resolved]
  - Decreased appetite [Unknown]
  - Pharyngeal exudate [Not Recovered/Not Resolved]
  - Spinal pain [Not Recovered/Not Resolved]
  - Pharyngeal erythema [Not Recovered/Not Resolved]
  - Feeling abnormal [Unknown]
  - Injection site pain [Not Recovered/Not Resolved]
  - Memory impairment [Unknown]
  - Spinal osteoarthritis [Not Recovered/Not Resolved]
  - Fear [Unknown]
  - Oropharyngeal pain [Not Recovered/Not Resolved]
  - Contusion [Unknown]
  - Dysphagia [Not Recovered/Not Resolved]
  - Drug ineffective [Unknown]
  - Animal scratch [Unknown]

NARRATIVE: CASE EVENT DATE: 2014
